FAERS Safety Report 4513467-5 (Version None)
Quarter: 2004Q4

REPORT INFORMATION
  Report Type: 
  Country: None (occurrence: None)
  Receive Date: 20041130
  Receipt Date: 20041115
  Transmission Date: 20050328
  Serious: Yes (Hospitalization)
  Sender: FDA-Public Use
  Company Number: 200414273FR

PATIENT
  Age: 83 Year
  Sex: Male

DRUGS (9)
  1. TORENTAL [Suspect]
     Route: 048
     Dates: start: 19890101, end: 20041001
  2. LODALES [Suspect]
     Route: 048
     Dates: start: 19940101, end: 20040929
  3. SINGULAIR [Suspect]
     Route: 048
     Dates: start: 20020101, end: 20040930
  4. KARDEGIC [Concomitant]
  5. ISKEDYL [Concomitant]
  6. PROZAC [Concomitant]
  7. ATHYMIL [Concomitant]
  8. FLIXOTIDE [Concomitant]
  9. FORADIL [Concomitant]

REACTIONS (11)
  - BRONCHOSCOPY ABNORMAL [None]
  - CARDIAC FAILURE [None]
  - CARDIAC FAILURE CHRONIC [None]
  - DEPRESSION [None]
  - DRUG HYPERSENSITIVITY [None]
  - DRUG INEFFECTIVE [None]
  - DYSPNOEA EXACERBATED [None]
  - HYPERAEMIA [None]
  - LYMPHOCYTE COUNT INCREASED [None]
  - PNEUMONITIS [None]
  - PRODUCTIVE COUGH [None]
